FAERS Safety Report 7259077-0 (Version None)
Quarter: 2011Q1

REPORT INFORMATION
  Report Type: 
  Country: None (occurrence: None)
  Receive Date: 20110129
  Receipt Date: 20100811
  Transmission Date: 20110831
  Serious: No
  Sender: FDA-Public Use
  Company Number: US-ABBOTT-10P-163-0663443-00

PATIENT
  Sex: Female
  Weight: 45.4 kg

DRUGS (3)
  1. PENTASA [Concomitant]
     Indication: CROHN'S DISEASE
     Dosage: 3-500MG CAPS TWICE DAILY
  2. HUMIRA [Suspect]
     Indication: CROHN'S DISEASE
     Dates: start: 20100501
  3. IMURAN [Concomitant]
     Indication: CROHN'S DISEASE

REACTIONS (2)
  - HAIR TEXTURE ABNORMAL [None]
  - TRICHORRHEXIS [None]
